FAERS Safety Report 8272779-2 (Version None)
Quarter: 2012Q2

REPORT INFORMATION
  Report Type: 
  Country: None (occurrence: None)
  Receive Date: 20120411
  Receipt Date: 20120403
  Transmission Date: 20120825
  Serious: Yes (Hospitalization, Other)
  Sender: FDA-Public Use
  Company Number: US-BIOGENIDEC-2011BI043479

PATIENT
  Age: 56 Year
  Sex: Female

DRUGS (3)
  1. AVONEX [Suspect]
     Route: 030
     Dates: start: 20110801
  2. AVONEX [Suspect]
     Route: 030
     Dates: start: 19990705
  3. AVONEX [Suspect]
     Indication: MULTIPLE SCLEROSIS
     Route: 030
     Dates: start: 19990705

REACTIONS (7)
  - PNEUMONIA [None]
  - BENIGN OVARIAN TUMOUR [None]
  - VULVAL CANCER STAGE 0 [None]
  - RENAL FAILURE ACUTE [None]
  - DIABETES MELLITUS [None]
  - WEIGHT INCREASED [None]
  - BONE MARROW DISORDER [None]
